FAERS Safety Report 6444547-5 (Version None)
Quarter: 2009Q4

REPORT INFORMATION
  Report Type: 
  Country: None (occurrence: None)
  Receive Date: 20091118
  Receipt Date: 20090804
  Transmission Date: 20100525
  Serious: No
  Sender: FDA-Public Use
  Company Number: A0800427A

PATIENT
  Age: 84 Year
  Sex: Female

DRUGS (4)
  1. COREG CR [Suspect]
     Indication: HYPERTENSION
     Dosage: 80MG PER DAY
     Route: 048
     Dates: start: 20090721
  2. SIMVASTATIN [Concomitant]
  3. ASA BABY [Concomitant]
  4. MECLIZINE [Concomitant]

REACTIONS (1)
  - DIZZINESS [None]
